FAERS Safety Report 15241640 (Version 1)
Quarter: 2018Q3

REPORT INFORMATION
  Report Type: Report from Study
  Country: CA (occurrence: CA)
  Receive Date: 20180805
  Receipt Date: 20180805
  Transmission Date: 20181010
  Serious: Yes (Death)
  Sender: FDA-Public Use
  Company Number: PHHY2016CA145347

PATIENT
  Age: 72 Year
  Sex: Female

DRUGS (9)
  1. ZYKADIA [Suspect]
     Active Substance: CERITINIB
     Indication: NON-SMALL CELL LUNG CANCER
     Dosage: 450 MG, QD
     Route: 048
     Dates: start: 20161013
  2. ZYKADIA [Suspect]
     Active Substance: CERITINIB
     Dosage: 1 DF, QD
     Route: 048
     Dates: start: 20161201
  3. ZYKADIA [Suspect]
     Active Substance: CERITINIB
     Dosage: 450 MG, QD
     Route: 048
  4. PROCHLORPERAZINE. [Concomitant]
     Active Substance: PROCHLORPERAZINE
     Indication: PRODUCT USED FOR UNKNOWN INDICATION
     Route: 065
  5. ZYKADIA [Suspect]
     Active Substance: CERITINIB
     Dosage: 600 MG, QD
     Route: 048
  6. ZYKADIA [Suspect]
     Active Substance: CERITINIB
     Dosage: 750 MG, QD
     Route: 048
     Dates: end: 201701
  7. ZYKADIA [Suspect]
     Active Substance: CERITINIB
     Dosage: 1 DF, (3 TO 4 TABS)
     Route: 048
  8. NOVO?LOPERAMIDE [Suspect]
     Active Substance: LOPERAMIDE HYDROCHLORIDE
     Indication: DIARRHOEA
     Route: 065
  9. ZYKADIA [Suspect]
     Active Substance: CERITINIB
     Dosage: 150 MG, QD
     Route: 048

REACTIONS (15)
  - Headache [Unknown]
  - Drug administration error [Unknown]
  - Vomiting [Unknown]
  - Hypersomnia [Unknown]
  - Fatigue [Unknown]
  - Death [Fatal]
  - Hepatic enzyme decreased [Unknown]
  - Malaise [Unknown]
  - Insomnia [Unknown]
  - Diarrhoea [Unknown]
  - Dysphagia [Unknown]
  - Constipation [Unknown]
  - Drug intolerance [Unknown]
  - Asthenia [Unknown]
  - Asthenia [None]

NARRATIVE: CASE EVENT DATE: 201610
